FAERS Safety Report 9736748 (Version 1)
Quarter: 2013Q4

REPORT INFORMATION
  Report Type: Report from Study
  Country: CA (occurrence: CA)
  Receive Date: 20131206
  Receipt Date: 20131206
  Transmission Date: 20140711
  Serious: Yes (Other)
  Sender: FDA-Public Use
  Company Number: PHHY2013CA142647

PATIENT
  Sex: Male

DRUGS (2)
  1. CLOZARIL [Suspect]
     Indication: SCHIZOPHRENIA
     Dosage: UNK UKN, UNK
     Dates: start: 19990219
  2. CLOZARIL [Suspect]
     Dosage: CLOZARIL DOSAGE WAS DECREASED

REACTIONS (4)
  - Toxicity to various agents [Unknown]
  - Balance disorder [Unknown]
  - Somnolence [Unknown]
  - Salivary hypersecretion [Unknown]
